FAERS Safety Report 5767838-X (Version None)
Quarter: 2008Q2

REPORT INFORMATION
  Report Type: 
  Country: None (occurrence: None)
  Receive Date: 20080612
  Receipt Date: 20080610
  Transmission Date: 20081010
  Serious: Yes (Life-Threatening, Hospitalization, Other)
  Sender: FDA-Public Use
  Company Number: PHHY2008JP10358

PATIENT
  Sex: Female

DRUGS (4)
  1. VOLTAREN [Suspect]
     Indication: PYREXIA
     Dosage: 25 MG
     Route: 048
     Dates: start: 19990403, end: 19990403
  2. FOSMICIN S [Concomitant]
     Indication: UPPER RESPIRATORY TRACT INFECTION
     Dosage: UNK
     Route: 042
     Dates: start: 19990403, end: 19990403
  3. FLOMOX [Concomitant]
     Indication: UPPER RESPIRATORY TRACT INFECTION
     Dosage: 300 MG
     Route: 048
     Dates: start: 19990402, end: 19990404
  4. DASEN [Concomitant]
     Indication: UPPER RESPIRATORY TRACT INFECTION
     Dosage: 30 MG
     Dates: start: 19990402, end: 19990404

REACTIONS (11)
  - ALANINE AMINOTRANSFERASE INCREASED [None]
  - ASPARTATE AMINOTRANSFERASE INCREASED [None]
  - BLOOD ALKALINE PHOSPHATASE INCREASED [None]
  - CONJUNCTIVAL HYPERAEMIA [None]
  - EYE DISCHARGE [None]
  - HEPATITIS [None]
  - JAUNDICE [None]
  - OROPHARYNGEAL BLISTERING [None]
  - PRURITUS [None]
  - RASH GENERALISED [None]
  - SKIN EXFOLIATION [None]
